FAERS Safety Report 9490103 (Version 4)
Quarter: 2016Q3

REPORT INFORMATION
  Report Type: Spontaneous
  Country: US (occurrence: US)
  Receive Date: 20130829
  Receipt Date: 20160929
  Transmission Date: 20161109
  Serious: Yes (Other)
  Sender: FDA-Public Use
  Company Number: US-JNJFOC-20130809237

PATIENT
  Age: 63 Year
  Sex: Female
  Weight: 72.58 kg

DRUGS (4)
  1. IBUPROFEN. [Suspect]
     Active Substance: IBUPROFEN
     Route: 065
  2. LEVAQUIN [Suspect]
     Active Substance: LEVOFLOXACIN
     Indication: SINUSITIS
     Route: 042
     Dates: start: 20081023, end: 20081023
  3. LEVAQUIN [Suspect]
     Active Substance: LEVOFLOXACIN
     Indication: SINUSITIS
     Route: 048
     Dates: start: 20081026, end: 20081026
  4. IBUPROFEN. [Suspect]
     Active Substance: IBUPROFEN
     Indication: PRODUCT USED FOR UNKNOWN INDICATION
     Route: 065

REACTIONS (25)
  - Ventricular extrasystoles [Unknown]
  - Supraventricular tachycardia [Unknown]
  - Cranial nerve disorder [Unknown]
  - Urticaria [Not Recovered/Not Resolved]
  - Connective tissue disorder [Unknown]
  - Pain [Recovered/Resolved]
  - Muscle atrophy [Unknown]
  - Therapeutic response delayed [Unknown]
  - Cardiac disorder [Unknown]
  - Neuropathy peripheral [Not Recovered/Not Resolved]
  - Tendonitis [Unknown]
  - Depression [Unknown]
  - Swelling [Unknown]
  - Anxiety [Unknown]
  - Suicidal ideation [Unknown]
  - Muscle disorder [Not Recovered/Not Resolved]
  - Feeling abnormal [Not Recovered/Not Resolved]
  - Trigeminal nerve disorder [Unknown]
  - Myofascial pain syndrome [Not Recovered/Not Resolved]
  - Hypothyroidism [Not Recovered/Not Resolved]
  - Peripheral swelling [Unknown]
  - Vitamin B12 deficiency [Not Recovered/Not Resolved]
  - Toxicity to various agents [Not Recovered/Not Resolved]
  - Vitamin D deficiency [Not Recovered/Not Resolved]
  - Multiple allergies [Not Recovered/Not Resolved]

NARRATIVE: CASE EVENT DATE: 200810
